FAERS Safety Report 24128111 (Version 2)
Quarter: 2024Q3

REPORT INFORMATION
  Report Type: Spontaneous
  Country: RU (occurrence: RU)
  Receive Date: 20240723
  Receipt Date: 20240906
  Transmission Date: 20241017
  Serious: Yes (Other)
  Sender: VERTEX
  Company Number: RU-VERTEX PHARMACEUTICALS-2024-011808

PATIENT
  Age: 11 Year
  Sex: Female
  Weight: 38 kg

DRUGS (1)
  1. TRIKAFTA [Suspect]
     Active Substance: ELEXACAFTOR\IVACAFTOR\TEZACAFTOR
     Indication: Cystic fibrosis
     Dosage: 2 TABLETS IN AM AND 1 TABLET IN PM
     Route: 048
     Dates: start: 20230111, end: 20240711

REACTIONS (3)
  - Infective pulmonary exacerbation of cystic fibrosis [Not Recovered/Not Resolved]
  - Cell death [Not Recovered/Not Resolved]
  - Drug ineffective [Unknown]
